FAERS Safety Report 4708683-3 (Version None)
Quarter: 2005Q3

REPORT INFORMATION
  Report Type: 
  Country: None (occurrence: None)
  Receive Date: 20050706
  Receipt Date: 20050625
  Transmission Date: 20060218
  Serious: Yes (Hospitalization, Other)
  Sender: FDA-Public Use
  Company Number: 2005047337

PATIENT
  Age: 93 Year
  Sex: Female
  Weight: 47.6277 kg

DRUGS (5)
  1. DETROL LA [Suspect]
     Indication: HYPERTONIC BLADDER
     Dosage: 4 MG (4 MG, 1 IN 1 D), ORAL
     Route: 048
     Dates: start: 20030101
  2. TROSPIUM CHLORIDE (TROSPIUM CHLORIDE) [Suspect]
     Indication: HYPERTONIC BLADDER
     Dosage: ORAL
     Route: 048
     Dates: start: 20041101, end: 20041101
  3. VITAMINS (VITAMINS) [Concomitant]
  4. CALCIUM (CALCIUM) [Concomitant]
  5. ACETAMINOPHEN [Concomitant]

REACTIONS (7)
  - DIARRHOEA [None]
  - DIZZINESS [None]
  - FALL [None]
  - INJURY [None]
  - LOSS OF CONSCIOUSNESS [None]
  - RADIUS FRACTURE [None]
  - ULNA FRACTURE [None]
